FAERS Safety Report 7742715-3 (Version None)
Quarter: 2011Q3

REPORT INFORMATION
  Report Type: 
  Country: None (occurrence: None)
  Receive Date: 20110912
  Receipt Date: 20110901
  Transmission Date: 20111222
  Serious: Yes (Other)
  Sender: FDA-Public Use
  Company Number: CA-JNJFOC-20110804782

PATIENT
  Sex: Female
  Weight: 55 kg

DRUGS (7)
  1. REMICADE [Suspect]
     Indication: PSORIASIS
     Route: 042
     Dates: start: 20101119
  2. PREDNISONE [Concomitant]
     Dosage: ALTERNATING DOSE EVERY OTHER DAY
  3. REMICADE [Suspect]
     Route: 042
     Dates: start: 20110804
  4. RAMIPRIL [Concomitant]
     Route: 048
  5. SPIRIVA [Concomitant]
  6. SALMETEROL [Concomitant]
     Dosage: 2 PUFFS 4 X PER DAY
  7. PREDNISONE [Concomitant]
     Dosage: ALTERNATING DOSE EVERY OTHER DAY

REACTIONS (3)
  - PAIN IN EXTREMITY [None]
  - PERIPHERAL COLDNESS [None]
  - COLOSTOMY CLOSURE [None]
